FAERS Safety Report 25597490 (Version 1)
Quarter: 2025Q3

REPORT INFORMATION
  Report Type: Spontaneous
  Country: US (occurrence: US)
  Receive Date: 20250723
  Receipt Date: 20250723
  Transmission Date: 20251020
  Serious: No
  Sender: ASTELLAS
  Company Number: US-ASTELLAS-2025-AER-029275

PATIENT
  Age: 60 Year
  Sex: Female

DRUGS (1)
  1. FEZOLINETANT [Suspect]
     Active Substance: FEZOLINETANT
     Indication: Product used for unknown indication
     Route: 065
     Dates: start: 202504, end: 20250529

REACTIONS (2)
  - Purpura [Not Recovered/Not Resolved]
  - Condition aggravated [Not Recovered/Not Resolved]
